FAERS Safety Report 5981374-7 (Version None)
Quarter: 2008Q4

REPORT INFORMATION
  Report Type: 
  Country: None (occurrence: None)
  Receive Date: 20081126
  Receipt Date: 20081117
  Transmission Date: 20090506
  Serious: Yes (Other)
  Sender: FDA-Public Use
  Company Number: 2008AP003001

PATIENT
  Age: 28 Year
  Sex: Female

DRUGS (3)
  1. SERTRALINE HYDROCHLORIDE [Suspect]
     Indication: DEPRESSION
     Dosage: 50 MG; PO; QD
     Route: 048
     Dates: start: 20080909, end: 20081003
  2. CITALOPRAM HYDROBOMIDE (CITALOPRAM HYDROBROMIDE) [Concomitant]
  3. FLUOXETINE HYDROBROMIDE (FLUOXETINE HYDROBROMIDE) [Concomitant]

REACTIONS (6)
  - ASTHMA [None]
  - DRUG HYPERSENSITIVITY [None]
  - JOINT SWELLING [None]
  - PRURITUS [None]
  - RASH [None]
  - URTICARIA [None]
